FAERS Safety Report 6384025-5 (Version None)
Quarter: 2009Q4

REPORT INFORMATION
  Report Type: 
  Country: None (occurrence: None)
  Receive Date: 20091001
  Receipt Date: 20090918
  Transmission Date: 20100525
  Serious: Yes (Hospitalization, Other)
  Sender: FDA-Public Use
  Company Number: DE-PFIZER INC-2009260925

PATIENT
  Age: 23 Year

DRUGS (7)
  1. ZELDOX [Suspect]
     Indication: PSYCHOTIC BEHAVIOUR
     Dosage: 80MG/DAY
     Route: 048
     Dates: start: 20090818, end: 20090822
  2. ZELDOX [Interacting]
     Indication: SCHIZOPHRENIA, DISORGANISED TYPE
  3. SEROQUEL [Interacting]
     Indication: PSYCHOTIC DISORDER
     Dosage: 900-1200MG/DAY
     Route: 048
     Dates: start: 20090804, end: 20090903
  4. OBSIDAN [Concomitant]
     Indication: TACHYCARDIA
     Dosage: 25 MG, 1X/DAY
     Route: 048
     Dates: start: 20090819
  5. LORAZEPAM [Concomitant]
     Indication: RESTLESSNESS
     Dosage: 1-3MG/DAY
     Route: 048
     Dates: start: 20090805, end: 20090824
  6. LORAZEPAM [Concomitant]
     Indication: AGGRESSION
  7. CIATYL-Z ACUPHASE [Concomitant]
     Dosage: 50 MG, SINGLE
     Route: 030
     Dates: start: 20090819, end: 20090819

REACTIONS (3)
  - DRUG INTERACTION [None]
  - EAR DISCOMFORT [None]
  - HEARING IMPAIRED [None]
